FAERS Safety Report 11931569 (Version 1)
Quarter: 2016Q1

REPORT INFORMATION
  Report Type: Spontaneous
  Country: US (occurrence: US)
  Receive Date: 20160120
  Receipt Date: 20160120
  Transmission Date: 20160526
  Serious: Yes (Other)
  Sender: FDA-Public Use
  Company Number: US-INCYTE CORPORATION-2015IN005449

PATIENT
  Age: 79 Year
  Sex: Male
  Weight: 81.63 kg

DRUGS (8)
  1. JAKAFI [Suspect]
     Active Substance: RUXOLITINIB
     Indication: MYELOFIBROSIS
     Dosage: 5 MG, BID
     Route: 048
     Dates: start: 20150805, end: 20151006
  2. VITAMIN C [Concomitant]
     Active Substance: ASCORBIC ACID
     Dosage: 250 MG, QD
     Route: 048
  3. TRIAMCINOLONE [Concomitant]
     Active Substance: TRIAMCINOLONE
     Dosage: BID
     Route: 061
  4. TUMS [Concomitant]
     Active Substance: CALCIUM CARBONATE
     Dosage: 300 MG, BID
     Route: 048
  5. CYANOCOBALAMIN. [Concomitant]
     Active Substance: CYANOCOBALAMIN
     Dosage: 500 MCG, QD
     Route: 048
  6. PREDNISONE. [Concomitant]
     Active Substance: PREDNISONE
     Dosage: 10 MG, BID
  7. JAKAFI [Suspect]
     Active Substance: RUXOLITINIB
     Dosage: 10 MG, BID
     Route: 048
     Dates: start: 20151007
  8. CALCITRIOL. [Concomitant]
     Active Substance: CALCITRIOL
     Dosage: 0.25 MCG, QD
     Route: 048

REACTIONS (16)
  - Fatigue [Unknown]
  - Epistaxis [Unknown]
  - Sinus tachycardia [Unknown]
  - Oedema peripheral [Unknown]
  - Anaemia [Unknown]
  - Nausea [Unknown]
  - Drug dose omission [Unknown]
  - Asthenia [Unknown]
  - Mouth haemorrhage [Unknown]
  - Dizziness [Unknown]
  - Dysgeusia [Unknown]
  - Platelet count decreased [Unknown]
  - Aortic stenosis [Unknown]
  - Mitral valve incompetence [Unknown]
  - Contusion [Unknown]
  - Haematocrit decreased [Unknown]

NARRATIVE: CASE EVENT DATE: 20151007
